FAERS Safety Report 11609951 (Version 1)
Quarter: 2015Q3

REPORT INFORMATION
  Report Type: Spontaneous
  Country: US (occurrence: US)
  Receive Date: 20150916
  Receipt Date: 20150916
  Transmission Date: 20151125
  Serious: No
  Sender: FDA-Public Use
  Company Number: US-ELI_LILLY_AND_COMPANY-US201308007041

PATIENT
  Sex: Male

DRUGS (3)
  1. LANTUS [Suspect]
     Active Substance: INSULIN GLARGINE
     Dosage: UNK
     Dates: start: 201305
  2. HUMALOG [Suspect]
     Active Substance: INSULIN LISPRO
     Dosage: UNK
  3. HUMALOG [Suspect]
     Active Substance: INSULIN LISPRO
     Indication: DIABETES MELLITUS
     Dosage: UNK, UNKNOWN
     Dates: start: 201305

REACTIONS (3)
  - Increased appetite [Unknown]
  - Weight increased [Unknown]
  - Visual impairment [Not Recovered/Not Resolved]
